FAERS Safety Report 5160624-3 (Version None)
Quarter: 2006Q4

REPORT INFORMATION
  Report Type: 
  Country: None (occurrence: None)
  Receive Date: 20061121
  Receipt Date: 20061023
  Transmission Date: 20070319
  Serious: Yes (Death, Other)
  Sender: FDA-Public Use
  Company Number: 2006001056

PATIENT
  Age: 54 Year
  Sex: Female

DRUGS (1)
  1. CELEBREX [Suspect]
     Indication: ARTHRITIS
     Dosage: 200 MG (200 MG,1 IN 1 D)
     Dates: start: 20010504, end: 20031211

REACTIONS (3)
  - MYOCARDIAL INFARCTION [None]
  - PULMONARY EMBOLISM [None]
  - SUDDEN CARDIAC DEATH [None]
